FAERS Safety Report 24768287 (Version 1)
Quarter: 2024Q4

REPORT INFORMATION
  Report Type: Report from Study
  Country: AU (occurrence: AU)
  Receive Date: 20241223
  Receipt Date: 20241223
  Transmission Date: 20250114
  Serious: Yes (Hospitalization, Other)
  Sender: ABBVIE
  Company Number: AU-ABBVIE-6051580

PATIENT
  Age: 83 Year
  Sex: Female

DRUGS (16)
  1. CARBIDOPA\LEVODOPA [Suspect]
     Active Substance: CARBIDOPA\LEVODOPA
     Indication: Parkinson^s disease
     Dosage: LEVODOPA/CARBIDOPA INTESTINAL GEL 20/5MG/ML MORNING DOSE 15ML?EXTRA-DOSE 3.3ML WITH 1 HOUR LOCKOU...
     Route: 050
     Dates: start: 2018
  2. CARBIDOPA\LEVODOPA [Suspect]
     Active Substance: CARBIDOPA\LEVODOPA
  3. CARBIDOPA AND LEVODOPA [Concomitant]
     Active Substance: CARBIDOPA\LEVODOPA
     Indication: Product used for unknown indication
     Dosage: 100/25MG MANE (AND PRN)
  4. PYRIDOXINE [Concomitant]
     Active Substance: PYRIDOXINE
     Indication: Product used for unknown indication
     Dosage: 25MG SECOND DAILY
  5. ROTIGOTINE [Concomitant]
     Active Substance: ROTIGOTINE
     Indication: Product used for unknown indication
     Dosage: 4MG PATCH DAILY
  6. AMANTADINE [Concomitant]
     Active Substance: AMANTADINE
     Indication: Product used for unknown indication
     Dosage: 100MG MANE
  7. CHOLECALCIFEROL [Concomitant]
     Active Substance: CHOLECALCIFEROL
     Indication: Product used for unknown indication
     Dosage: 25MCG MANE
  8. LANSOPRAZOLE [Concomitant]
     Active Substance: LANSOPRAZOLE
     Indication: Product used for unknown indication
     Dosage: DISPERSIBLE 30MG BD
  9. NIZATIDINE [Concomitant]
     Active Substance: NIZATIDINE
     Indication: Product used for unknown indication
     Dosage: 300MG BD
  10. NORTRIPTYLINE [Concomitant]
     Active Substance: NORTRIPTYLINE
     Indication: Product used for unknown indication
     Dosage: 25MG MANE
  11. POLYETHYLENE GLYCOLS [Concomitant]
     Active Substance: POLYETHYLENE GLYCOLS
     Indication: Product used for unknown indication
     Dosage: 1 SCOOP DAILY
  12. PSYLLIUM [Concomitant]
     Active Substance: PLANTAGO SEED
     Indication: Product used for unknown indication
     Dosage: HUSK POWDER (METAMUCIL) 2 TSP IN 250ML WATER DAILY
  13. SODIUM PICOSULFATE [Concomitant]
     Active Substance: SODIUM PICOSULFATE
     Indication: Product used for unknown indication
     Dosage: 20 DROPS MANE
  14. DOMPERIDONE [Concomitant]
     Active Substance: DOMPERIDONE
     Indication: Product used for unknown indication
     Dosage: 10MG MANE
  15. ESTRADIOL [Concomitant]
     Active Substance: ESTRADIOL
     Indication: Product used for unknown indication
     Dosage: 1MG PV TWICE WEEKLY
  16. APIXABAN [Concomitant]
     Active Substance: APIXABAN
     Indication: Product used for unknown indication
     Dosage: 5MG BD (CEASE AFTER 3 MONTHS)

REACTIONS (15)
  - Oxygen saturation decreased [Recovering/Resolving]
  - Upper respiratory tract infection [Unknown]
  - Rhinorrhoea [Unknown]
  - Cough [Unknown]
  - Unevaluable event [Unknown]
  - Rhinovirus infection [Unknown]
  - Depression [Unknown]
  - Pulmonary embolism [Unknown]
  - Therapeutic product effect delayed [Unknown]
  - Parkinsonism [Unknown]
  - Dysphagia [Unknown]
  - Hypophagia [Unknown]
  - Dysphagia [Unknown]
  - Melaena [Unknown]
  - Gastrointestinal haemorrhage [Unknown]
